FAERS Safety Report 20255418 (Version 2)
Quarter: 2022Q1

REPORT INFORMATION
  Report Type: Report from Study
  Country: ES (occurrence: ES)
  Receive Date: 20211230
  Receipt Date: 20220228
  Transmission Date: 20220424
  Serious: Yes (Hospitalization, Other)
  Sender: FDA-Public Use
  Company Number: ES-ELI_LILLY_AND_COMPANY-ES202001005583

PATIENT
  Age: 75 Year
  Sex: Female

DRUGS (10)
  1. SERTRALINE [Suspect]
     Active Substance: SERTRALINE HYDROCHLORIDE
     Indication: Depression
     Dosage: 100 MG, UNKNOWN
     Route: 065
  2. SERTRALINE [Suspect]
     Active Substance: SERTRALINE HYDROCHLORIDE
     Dosage: 50 MG, UNKNOWN
     Route: 065
  3. ABEMACICLIB [Suspect]
     Active Substance: ABEMACICLIB
     Indication: Breast cancer metastatic
     Dosage: 100 MG, UNKNOWN
     Route: 048
  4. ABEMACICLIB [Suspect]
     Active Substance: ABEMACICLIB
     Dosage: 100 MG, UNKNOWN
     Route: 048
  5. ABEMACICLIB [Suspect]
     Active Substance: ABEMACICLIB
     Dosage: 100 MG, UNKNOWN
     Route: 048
     Dates: start: 20200604
  6. ABEMACICLIB [Suspect]
     Active Substance: ABEMACICLIB
     Dosage: 150 MG, UNKNOWN
     Route: 048
     Dates: start: 20191113
  7. FASLODEX [Suspect]
     Active Substance: FULVESTRANT
     Indication: Breast cancer metastatic
     Dosage: UNK, UNKNOWN
     Route: 065
  8. FASLODEX [Suspect]
     Active Substance: FULVESTRANT
     Dosage: UNK, UNKNOWN
     Route: 065
  9. LOSARTAN [Concomitant]
     Active Substance: LOSARTAN
     Indication: Product used for unknown indication
     Dosage: UNK
  10. ALENDRONIC ACID [Concomitant]
     Active Substance: ALENDRONIC ACID
     Indication: Product used for unknown indication
     Dosage: UNK

REACTIONS (56)
  - Peripheral swelling [Unknown]
  - Cellulitis [Recovered/Resolved]
  - Vomiting [Unknown]
  - Alpha haemolytic streptococcal infection [Recovered/Resolved]
  - Headache [Unknown]
  - Choking [Recovering/Resolving]
  - Malignant neoplasm progression [Unknown]
  - Osteonecrosis of jaw [Recovering/Resolving]
  - Aortic aneurysm [Recovering/Resolving]
  - Arthralgia [Recovering/Resolving]
  - Bone pain [Recovering/Resolving]
  - Mass [Recovering/Resolving]
  - Visual impairment [Recovering/Resolving]
  - Memory impairment [Recovering/Resolving]
  - Myalgia [Recovering/Resolving]
  - Pain of skin [Recovering/Resolving]
  - Dry skin [Recovering/Resolving]
  - Skin wrinkling [Recovering/Resolving]
  - Skin exfoliation [Recovering/Resolving]
  - Pain in extremity [Recovering/Resolving]
  - Limb discomfort [Recovering/Resolving]
  - Ocular hyperaemia [Recovering/Resolving]
  - Eye discharge [Recovering/Resolving]
  - Lip injury [Recovering/Resolving]
  - Lip haemorrhage [Recovering/Resolving]
  - Weight decreased [Recovering/Resolving]
  - Dysphonia [Recovering/Resolving]
  - Chest discomfort [Recovering/Resolving]
  - Dyspnoea [Recovering/Resolving]
  - Fatigue [Recovered/Resolved]
  - Dyspepsia [Recovering/Resolving]
  - Gait disturbance [Recovering/Resolving]
  - Haemorrhoids [Recovering/Resolving]
  - Muscular weakness [Recovering/Resolving]
  - Productive cough [Recovering/Resolving]
  - Emotional disorder [Recovering/Resolving]
  - Palpitations [Not Recovered/Not Resolved]
  - Tinnitus [Recovering/Resolving]
  - Fall [Recovering/Resolving]
  - Injury associated with device [Recovering/Resolving]
  - Haematoma [Recovering/Resolving]
  - Vitamin B12 decreased [Recovering/Resolving]
  - Faeces hard [Recovering/Resolving]
  - Faeces discoloured [Recovering/Resolving]
  - Diarrhoea [Recovering/Resolving]
  - Blepharitis [Recovering/Resolving]
  - Retching [Unknown]
  - Gingival abscess [Recovering/Resolving]
  - Daydreaming [Recovering/Resolving]
  - Aortic aneurysm [Recovering/Resolving]
  - Cardiomegaly [Recovering/Resolving]
  - Alopecia [Recovering/Resolving]
  - Musculoskeletal discomfort [Recovering/Resolving]
  - Tooth loss [Recovering/Resolving]
  - Vitamin B12 deficiency [Recovering/Resolving]
  - Sluggishness [Unknown]

NARRATIVE: CASE EVENT DATE: 20191101
